FAERS Safety Report 4686846-3 (Version None)
Quarter: 2005Q2

REPORT INFORMATION
  Report Type: 
  Country: None (occurrence: None)
  Receive Date: 20050609
  Receipt Date: 20031209
  Transmission Date: 20051028
  Serious: Yes (Life-Threatening, Hospitalization, Other)
  Sender: FDA-Public Use
  Company Number: JP-MERCK-0312USA01278

PATIENT
  Age: 63 Year
  Sex: Male
  Weight: 56 kg

DRUGS (5)
  1. PEPCID [Suspect]
     Route: 048
     Dates: end: 20030404
  2. PIPERACILLIN [Suspect]
     Indication: PROPHYLAXIS
     Route: 042
     Dates: start: 20030228, end: 20030314
  3. LOXOPROFEN [Suspect]
     Route: 048
     Dates: end: 20030404
  4. VALSARTAN [Suspect]
     Route: 048
     Dates: start: 20030321, end: 20030420
  5. COZAAR [Suspect]
     Route: 048
     Dates: end: 20030321

REACTIONS (4)
  - BLOOD BILIRUBIN INCREASED [None]
  - BLOOD LACTATE DEHYDROGENASE INCREASED [None]
  - COOMBS NEGATIVE HAEMOLYTIC ANAEMIA [None]
  - SHUNT THROMBOSIS [None]
